FAERS Safety Report 4276133-X (Version None)
Quarter: 2004Q1

REPORT INFORMATION
  Report Type: 
  Country: None (occurrence: None)
  Receive Date: 20040121
  Receipt Date: 20031024
  Transmission Date: 20041129
  Serious: No
  Sender: FDA-Public Use
  Company Number: US-GLAXOSMITHKLINE-A0431619A

PATIENT
  Sex: Female

DRUGS (4)
  1. VALTREX [Suspect]
     Route: 048
  2. DEPO [Suspect]
     Route: 065
  3. REBETOL [Concomitant]
     Indication: HEPATITIS C
     Route: 065
  4. PEG-INTRON [Concomitant]
     Indication: HEPATITIS C
     Route: 065

REACTIONS (1)
  - MENSTRUAL DISORDER [None]
